FAERS Safety Report 25011282 (Version 1)
Quarter: 2025Q1

REPORT INFORMATION
  Report Type: Spontaneous
  Country: DE (occurrence: DE)
  Receive Date: 20250226
  Receipt Date: 20250226
  Transmission Date: 20250409
  Serious: Yes (Hospitalization)
  Sender: AMGEN
  Company Number: DE-AMK-284759

PATIENT
  Age: 75 Year
  Sex: Male
  Weight: 70 kg

DRUGS (3)
  1. VECTIBIX [Suspect]
     Active Substance: PANITUMUMAB
     Indication: Tumour marker increased
     Route: 065
     Dates: start: 20241126, end: 20250121
  2. CALCIUMFOLINAT KABI [Concomitant]
     Indication: Tumour marker increased
     Dates: start: 20240528, end: 20250121
  3. FLUOROURACIL [Concomitant]
     Active Substance: FLUOROURACIL
     Indication: Tumour marker increased
     Dates: start: 20240528, end: 20250121

REACTIONS (8)
  - Facial pain [Not Recovered/Not Resolved]
  - Blister [Not Recovered/Not Resolved]
  - Skin weeping [Not Recovered/Not Resolved]
  - Skin haemorrhage [Not Recovered/Not Resolved]
  - Dry skin [Not Recovered/Not Resolved]
  - Erythema [Not Recovered/Not Resolved]
  - Pain of skin [Not Recovered/Not Resolved]
  - Oral pain [Not Recovered/Not Resolved]

NARRATIVE: CASE EVENT DATE: 20250121
